FAERS Safety Report 12440478 (Version 8)
Quarter: 2016Q4

REPORT INFORMATION
  Report Type: Spontaneous
  Country: ES (occurrence: ES)
  Receive Date: 20160606
  Receipt Date: 20161125
  Transmission Date: 20170207
  Serious: Yes (Hospitalization, Other)
  Sender: FDA-Public Use
  Company Number: ES-TAKEDA-2016MPI004953

PATIENT
  Age: 73 Year
  Sex: Female
  Weight: 81 kg

DRUGS (59)
  1. PREDNISONE. [Suspect]
     Active Substance: PREDNISONE
     Dosage: 110 MG, UNK
     Route: 048
     Dates: start: 20160119, end: 20160122
  2. PREDNISONE. [Suspect]
     Active Substance: PREDNISONE
     Dosage: 110 MG, UNK
     Route: 048
     Dates: start: 20150915, end: 20150918
  3. MELPHALAN [Suspect]
     Active Substance: MELPHALAN
     Dosage: 16 MG, UNK
     Route: 048
     Dates: start: 20160119, end: 20160122
  4. MELPHALAN [Suspect]
     Active Substance: MELPHALAN
     Dosage: 16 MG, UNK
     Route: 048
     Dates: start: 20150804, end: 20150808
  5. ENEMA CASEN                        /01858901/ [Concomitant]
     Indication: ACUTE KIDNEY INJURY
     Dosage: 250 ML, UNK
     Route: 054
     Dates: start: 20160204, end: 20160204
  6. ERYTHROPOIETIN [Concomitant]
     Active Substance: ERYTHROPOIETIN
     Indication: ACUTE KIDNEY INJURY
     Dosage: UNK, 1/WEEK
     Route: 058
     Dates: start: 20150901, end: 20151027
  7. PREDNISONE. [Suspect]
     Active Substance: PREDNISONE
     Dosage: 110 MG, UNK
     Route: 048
     Dates: start: 20151210, end: 20151213
  8. NALOXONE W/OXYCODONE [Concomitant]
     Active Substance: NALOXONE HYDROCHLORIDE\OXYCODONE HYDROCHLORIDE
     Indication: PROPHYLAXIS
     Dosage: 15 MG, BID
     Route: 048
     Dates: start: 2014, end: 20160216
  9. DESLORATADINE. [Concomitant]
     Active Substance: DESLORATADINE
     Indication: TOXIC SKIN ERUPTION
     Dosage: 5 MG, QD
     Route: 048
     Dates: start: 20150907, end: 20150917
  10. ATARAX [Concomitant]
     Active Substance: HYDROXYZINE\HYDROXYZINE HYDROCHLORIDE
     Indication: TOXIC SKIN ERUPTION
     Dosage: 25 MG, QD
     Route: 048
     Dates: start: 20150907, end: 20150917
  11. GABAPENTIN. [Concomitant]
     Active Substance: GABAPENTIN
     Indication: PERIPHERAL SENSORY NEUROPATHY
     Route: 048
     Dates: start: 2013, end: 20151209
  12. TORASEMIDE [Concomitant]
     Active Substance: TORSEMIDE
     Indication: HYPERTENSION
     Dosage: 10 MG, QD
     Route: 048
     Dates: start: 2014, end: 20150818
  13. CLEXANE [Concomitant]
     Active Substance: ENOXAPARIN SODIUM
     Indication: GENERAL PHYSICAL HEALTH DETERIORATION
  14. VELCADE [Suspect]
     Active Substance: BORTEZOMIB
     Dosage: 1.68 MG, UNK
     Route: 058
     Dates: start: 20160301, end: 20160308
  15. PREDNISONE. [Suspect]
     Active Substance: PREDNISONE
     Dosage: 110 MG, UNK
     Route: 048
     Dates: start: 20151027, end: 20151030
  16. MELPHALAN [Suspect]
     Active Substance: MELPHALAN
     Indication: PLASMA CELL MYELOMA
     Dosage: 16 MG, UNK
     Route: 048
     Dates: start: 20160419, end: 20160422
  17. MELPHALAN [Suspect]
     Active Substance: MELPHALAN
     Dosage: 9 MG, UNK
     Route: 048
     Dates: start: 20151210, end: 20151213
  18. LEVOFLOXACIN. [Concomitant]
     Active Substance: LEVOFLOXACIN
     Indication: PYREXIA
     Dosage: 500 MG, QD
     Route: 048
     Dates: start: 20150818, end: 20150824
  19. GABAPENTIN. [Concomitant]
     Active Substance: GABAPENTIN
     Indication: PROPHYLAXIS
     Dosage: 300 MG, QD
     Route: 048
     Dates: start: 20160101, end: 20160104
  20. ENEMA CASEN                        /01858901/ [Concomitant]
     Indication: GENERAL PHYSICAL HEALTH DETERIORATION
     Dosage: UNK
     Route: 054
     Dates: start: 20160205, end: 20160205
  21. ENEMA CASEN                        /01858901/ [Concomitant]
     Indication: CONSTIPATION
  22. ALISKIREN [Concomitant]
     Active Substance: ALISKIREN
     Indication: HYPERTENSION
     Dosage: 300 MG, UNK
     Route: 048
     Dates: start: 2014, end: 20150818
  23. FOSFOMYCIN [Concomitant]
     Active Substance: FOSFOMYCIN
     Indication: PROPHYLAXIS URINARY TRACT INFECTION
     Dosage: 3 G, UNK
     Route: 048
     Dates: start: 20160205, end: 20160205
  24. PREDNISONE. [Suspect]
     Active Substance: PREDNISONE
     Indication: PLASMA CELL MYELOMA
     Dosage: 110 MG, UNK
     Route: 048
     Dates: start: 20150804, end: 20150808
  25. MELPHALAN [Suspect]
     Active Substance: MELPHALAN
     Dosage: 16 MG, UNK
     Route: 048
     Dates: start: 20150915, end: 20150918
  26. MELPHALAN [Suspect]
     Active Substance: MELPHALAN
     Dosage: 16 MG, UNK
     Route: 048
     Dates: start: 20160301, end: 20160304
  27. ESOMEPRAZOLE [Concomitant]
     Active Substance: ESOMEPRAZOLE
     Indication: PROPHYLAXIS
     Dosage: 20 MG, QD
     Route: 048
     Dates: start: 2014, end: 20160215
  28. CALCIUM W/VITAMIN D NOS [Concomitant]
     Active Substance: CALCIUM\VITAMIN D
     Indication: PROPHYLAXIS
     Dosage: 1000 MG, UNK
     Route: 048
     Dates: start: 2014
  29. GABAPENTIN. [Concomitant]
     Active Substance: GABAPENTIN
     Indication: GENERAL PHYSICAL HEALTH DETERIORATION
     Dosage: 600 MG, BID
     Route: 048
     Dates: start: 20151210, end: 20151228
  30. GABAPENTIN. [Concomitant]
     Active Substance: GABAPENTIN
     Indication: PROPHYLAXIS
  31. ERYTHROPOIETIN [Concomitant]
     Active Substance: ERYTHROPOIETIN
     Indication: ANAEMIA PROPHYLAXIS
  32. FUROSEMIDE. [Concomitant]
     Active Substance: FUROSEMIDE
     Indication: ACUTE KIDNEY INJURY
     Dosage: 20 MG, QD
     Route: 048
     Dates: start: 20160216
  33. PREDNISONE. [Suspect]
     Active Substance: PREDNISONE
     Dosage: 110 MG, UNK
     Route: 048
     Dates: start: 20160419, end: 20160422
  34. MELPHALAN [Suspect]
     Active Substance: MELPHALAN
     Dosage: 16 MG, UNK
     Route: 048
     Dates: start: 20151027, end: 20151030
  35. NALOXONE W/OXYCODONE [Concomitant]
     Active Substance: NALOXONE HYDROCHLORIDE\OXYCODONE HYDROCHLORIDE
     Indication: CANCER PAIN
     Dosage: 15 MG, BID
     Route: 048
     Dates: start: 2014, end: 20160216
  36. SEPTRIN [Concomitant]
     Active Substance: SULFAMETHOXAZOLE\TRIMETHOPRIM
     Indication: INFECTION PROPHYLAXIS
     Dosage: UNK, 3/WEEK
     Route: 048
     Dates: start: 20150803, end: 20160205
  37. TORASEMIDE [Concomitant]
     Active Substance: TORSEMIDE
     Indication: HYPERTENSION
     Dosage: 10 MG, QD
     Route: 048
     Dates: start: 20150915
  38. POLARAMINE [Concomitant]
     Active Substance: DEXCHLORPHENIRAMINE MALEATE
     Indication: TOXIC SKIN ERUPTION
     Dosage: UNK
     Route: 030
     Dates: start: 20150907, end: 20150907
  39. GABAPENTIN. [Concomitant]
     Active Substance: GABAPENTIN
     Indication: ACUTE KIDNEY INJURY
     Dosage: 300 MG, BID
     Route: 048
     Dates: start: 20151229, end: 20151231
  40. TRAMADOL/PARACETAMOL [Concomitant]
     Active Substance: ACETAMINOPHEN\TRAMADOL
     Indication: MUSCULOSKELETAL CHEST PAIN
     Dosage: 325 MG, UNK
     Route: 048
     Dates: start: 20150905, end: 20150910
  41. METAMIZOLE [Concomitant]
     Active Substance: METAMIZOLE
     Indication: MUSCULOSKELETAL CHEST PAIN
     Dosage: 575 MG, UNK
     Route: 048
     Dates: start: 20150905, end: 20150910
  42. ERYTHROPOIETIN [Concomitant]
     Active Substance: ERYTHROPOIETIN
     Indication: GENERAL PHYSICAL HEALTH DETERIORATION
     Dosage: UNK, 1/WEEK
     Route: 058
     Dates: start: 20160205, end: 20160206
  43. PREDNISONE. [Suspect]
     Active Substance: PREDNISONE
     Dosage: 110 MG, UNK
     Route: 048
     Dates: start: 20160301, end: 20160304
  44. MEGESTROL [Concomitant]
     Active Substance: MEGESTROL
     Indication: DECREASED APPETITE
     Dosage: 40 ML, QD
     Route: 048
     Dates: start: 20150901
  45. MOMETASONE [Concomitant]
     Active Substance: MOMETASONE
     Indication: TOXIC SKIN ERUPTION
     Dosage: 1 MG, BID
     Route: 065
     Dates: start: 20150907, end: 20150917
  46. PARACETAMOL [Concomitant]
     Active Substance: ACETAMINOPHEN
     Indication: PYREXIA
     Dosage: 1 G, UNK
     Route: 048
     Dates: start: 20150818, end: 20150824
  47. CITALOPRAM [Concomitant]
     Active Substance: CITALOPRAM HYDROBROMIDE
     Indication: ANTIDEPRESSANT THERAPY
     Dosage: 20 MG, QD
     Route: 048
     Dates: start: 2014
  48. VALACYCLOVIR [Concomitant]
     Active Substance: VALACYCLOVIR HYDROCHLORIDE
     Indication: INFECTION PROPHYLAXIS
     Dosage: 500 MG, QD
     Route: 048
     Dates: start: 20150803
  49. MICOSTATIN [Concomitant]
     Indication: OROPHARYNGEAL CANDIDIASIS
     Dosage: 5 ML, TID
     Route: 048
     Dates: start: 20150907, end: 20150918
  50. ZOLEDRONIC ACID [Concomitant]
     Active Substance: ZOLEDRONIC ACID
     Indication: OSTEOPOROSIS PROPHYLAXIS
     Dosage: 4 MG, MONTHLY
     Route: 042
     Dates: start: 20150804
  51. CLEXANE [Concomitant]
     Active Substance: ENOXAPARIN SODIUM
     Indication: ACUTE KIDNEY INJURY
     Dosage: 20 MG, UNK
     Route: 058
     Dates: start: 20160205, end: 20160205
  52. FUROSEMIDE. [Concomitant]
     Active Substance: FUROSEMIDE
     Indication: GENERAL PHYSICAL HEALTH DETERIORATION
  53. LORAZEPAM. [Concomitant]
     Active Substance: LORAZEPAM
     Indication: SLEEP DISORDER THERAPY
     Dosage: 1 MG, UNK
     Route: 048
     Dates: start: 20160216
  54. CEFTRIAXONE. [Concomitant]
     Active Substance: CEFTRIAXONE
     Indication: GENERAL PHYSICAL HEALTH DETERIORATION
     Dosage: 2 G, UNK
     Route: 042
     Dates: start: 20160209, end: 20160211
  55. VELCADE [Suspect]
     Active Substance: BORTEZOMIB
     Indication: PLASMA CELL MYELOMA
     Dosage: 1.18 MG, UNK
     Route: 058
     Dates: start: 20160419, end: 20160809
  56. VELCADE [Suspect]
     Active Substance: BORTEZOMIB
     Dosage: 2.33 MG, UNK
     Route: 058
     Dates: start: 20150804, end: 20160119
  57. GABAPENTIN. [Concomitant]
     Active Substance: GABAPENTIN
     Indication: BONE PAIN
     Dosage: 100 MG, QD
     Route: 048
     Dates: start: 20160205
  58. CEFTRIAXONE. [Concomitant]
     Active Substance: CEFTRIAXONE
     Indication: ACUTE KIDNEY INJURY
     Dosage: 1 G, UNK
     Route: 042
     Dates: start: 20160208, end: 20160208
  59. OMEPRAZOLE. [Concomitant]
     Active Substance: OMEPRAZOLE
     Indication: PROPHYLAXIS
     Dosage: 20 MG, QD
     Route: 048
     Dates: start: 20160216

REACTIONS (8)
  - Toxic skin eruption [Unknown]
  - Contusion [Unknown]
  - Oropharyngeal candidiasis [Unknown]
  - Pyrexia [Unknown]
  - Urinary tract infection [Unknown]
  - Constipation [Unknown]
  - Decreased appetite [Recovered/Resolved]
  - Autonomic nervous system imbalance [Recovered/Resolved]

NARRATIVE: CASE EVENT DATE: 20150816
